FAERS Safety Report 9715266 (Version 1)
Quarter: 2013Q4

REPORT INFORMATION
  Report Type: Spontaneous
  Country: DE (occurrence: DE)
  Receive Date: 20131127
  Receipt Date: 20131127
  Transmission Date: 20140711
  Serious: Yes (Other)
  Sender: FDA-Public Use
  Company Number: DE-ABBVIE-13P-062-1173349-00

PATIENT
  Age: 46 Year
  Sex: Male

DRUGS (24)
  1. ERGENYL [Suspect]
     Indication: PRODUCT USED FOR UNKNOWN INDICATION
     Dosage: 500 MG DAILY
     Dates: start: 20130809, end: 20130809
  2. ERGENYL [Suspect]
     Dosage: 1 GRAM DAILY
     Dates: start: 20130810, end: 20130810
  3. ERGENYL [Suspect]
     Dosage: 1.5 GRAMS DAILY
     Dates: start: 20130811
  4. TAVOR [Suspect]
     Indication: PRODUCT USED FOR UNKNOWN INDICATION
     Dosage: 2 MG DAILY
     Route: 048
     Dates: start: 20130809, end: 20130809
  5. TAVOR [Suspect]
     Dosage: 4 MG DAILY
     Route: 048
     Dates: start: 20130810, end: 20130813
  6. TAVOR [Suspect]
     Dosage: UNKNOWN DOSE DAILY
     Route: 048
     Dates: start: 20130814, end: 20130817
  7. LEPONEX [Suspect]
     Indication: PRODUCT USED FOR UNKNOWN INDICATION
     Dosage: 200 MG DAILY
     Route: 048
     Dates: start: 20130808, end: 20130808
  8. LEPONEX [Suspect]
     Dosage: 250 MG DAILY
     Route: 048
     Dates: start: 20130809, end: 20130809
  9. LEPONEX [Suspect]
     Dosage: 50MG DAILY
     Route: 048
     Dates: start: 20130810, end: 20130815
  10. LEPONEX [Suspect]
     Dosage: 225 MG DAILY
     Route: 048
     Dates: start: 20130816, end: 20130817
  11. LEPONEX [Suspect]
     Dosage: 50 MG DAILY
     Route: 048
     Dates: start: 20130818, end: 20130819
  12. LEPONEX [Suspect]
     Dosage: 25 MG DAILY
     Route: 048
     Dates: start: 20130820, end: 20130820
  13. LEPONEX [Suspect]
     Dosage: 75 MG DAILY
     Route: 048
     Dates: start: 20130821, end: 20130821
  14. LEPONEX [Suspect]
     Dosage: 100 MG DAILY
     Route: 048
     Dates: start: 20130822
  15. LYRICA [Suspect]
     Indication: PRODUCT USED FOR UNKNOWN INDICATION
     Dosage: 300 MG DAILY
     Route: 048
     Dates: end: 20130817
  16. LYRICA [Suspect]
     Dosage: 200 MG DAILY
     Route: 048
     Dates: start: 20130818
  17. GLIANIMON [Suspect]
     Indication: PRODUCT USED FOR UNKNOWN INDICATION
     Dosage: 9 MG DAILY
     Route: 048
     Dates: end: 20130807
  18. GLIANIMON [Suspect]
     Dosage: 6 MG DAILY
     Route: 048
     Dates: start: 20130808, end: 20130816
  19. GLIANIMON [Suspect]
     Dosage: 4 MG DAILY
     Route: 048
     Dates: start: 20130817, end: 20130819
  20. GLIANIMON [Suspect]
     Dosage: 9 MG DAILY
     Route: 048
     Dates: start: 20130820
  21. PIRENZEPINE [Suspect]
     Indication: PRODUCT USED FOR UNKNOWN INDICATION
     Dosage: 25 MG DAILY
     Route: 048
     Dates: start: 20130808, end: 20130808
  22. PIRENZEPINE [Suspect]
     Dosage: 75 MG DAILY
     Route: 048
     Dates: start: 20130809
  23. ABILIFY [Concomitant]
     Indication: PRODUCT USED FOR UNKNOWN INDICATION
  24. PANTOPRAZOLE SODIUM [Concomitant]
     Indication: PRODUCT USED FOR UNKNOWN INDICATION

REACTIONS (1)
  - Altered state of consciousness [Recovered/Resolved]
